FAERS Safety Report 6186507-8 (Version None)
Quarter: 2009Q2

REPORT INFORMATION
  Report Type: 
  Country: None (occurrence: None)
  Receive Date: 20090512
  Receipt Date: 20090508
  Transmission Date: 20091009
  Serious: Yes (Other)
  Sender: FDA-Public Use
  Company Number: IT-JNJFOC-20090501838

PATIENT
  Sex: Female

DRUGS (1)
  1. LEVOFLOXACIN [Suspect]
     Indication: PREVENTIVE SURGERY
     Route: 042

REACTIONS (2)
  - ERYTHEMA [None]
  - PRURITUS [None]
